FAERS Safety Report 9119509 (Version 5)
Quarter: 2016Q2

REPORT INFORMATION
  Report Type: Spontaneous
  Country: US (occurrence: US)
  Receive Date: 20130226
  Receipt Date: 20160614
  Transmission Date: 20160815
  Serious: Yes (Hospitalization, Other)
  Sender: FDA-Public Use
  Company Number: US-009507513-1302USA011679

PATIENT
  Sex: Female

DRUGS (5)
  1. FOSAMAX [Suspect]
     Active Substance: ALENDRONATE SODIUM
     Indication: OSTEOPENIA
  2. BONIVA [Suspect]
     Active Substance: IBANDRONATE SODIUM
     Indication: OSTEOPOROSIS
     Dosage: 150 MG, QM
     Route: 048
     Dates: start: 200711, end: 201205
  3. FOSAMAX PLUS D [Suspect]
     Active Substance: ALENDRONATE SODIUM\CHOLECALCIFEROL
     Indication: OSTEOPOROSIS
     Dosage: UNK, UNKNOWN
     Route: 048
     Dates: start: 200612, end: 200711
  4. BONIVA [Suspect]
     Active Substance: IBANDRONATE SODIUM
     Indication: OSTEOPENIA
  5. FOSAMAX [Suspect]
     Active Substance: ALENDRONATE SODIUM
     Indication: OSTEOPOROSIS
     Dosage: UNK, UNKNOWN
     Route: 048
     Dates: start: 1995, end: 200612

REACTIONS (25)
  - Femur fracture [Recovering/Resolving]
  - Low turnover osteopathy [Unknown]
  - Gastrooesophageal reflux disease [Unknown]
  - Fall [Unknown]
  - Asthma [Unknown]
  - Kyphosis [Unknown]
  - Fatigue [Unknown]
  - Bursitis [Unknown]
  - Dizziness [Recovered/Resolved]
  - Cough [Unknown]
  - Blood cholesterol increased [Not Recovered/Not Resolved]
  - Hypertension [Not Recovered/Not Resolved]
  - Uterine dilation and curettage [Unknown]
  - Femur fracture [Recovered/Resolved]
  - Eye injury [Unknown]
  - Headache [Unknown]
  - Depression [Unknown]
  - Keratomileusis [Unknown]
  - Thoracic vertebral fracture [Unknown]
  - Spinal compression fracture [Unknown]
  - Osteonecrosis of jaw [Unknown]
  - Hypothyroidism [Unknown]
  - Type 2 diabetes mellitus [Unknown]
  - Tonsillectomy [Unknown]
  - Hypoacusis [Unknown]

NARRATIVE: CASE EVENT DATE: 2001
